FAERS Safety Report 5234847-9 (Version None)
Quarter: 2007Q1

REPORT INFORMATION
  Report Type: 
  Country: None (occurrence: None)
  Receive Date: 20070209
  Receipt Date: 20070125
  Transmission Date: 20070707
  Serious: Yes (Hospitalization, Other)
  Sender: FDA-Public Use
  Company Number: US-PFIZER INC-2007007588

PATIENT
  Sex: Female
  Weight: 77.1 kg

DRUGS (1)
  1. BEXTRA [Suspect]
     Indication: ARTHRITIS
     Dates: start: 20031201, end: 20040601

REACTIONS (2)
  - ASTHMA [None]
  - MYOCARDIAL INFARCTION [None]
